FAERS Safety Report 4460593-5 (Version None)
Quarter: 2004Q3

REPORT INFORMATION
  Report Type: 
  Country: None (occurrence: None)
  Receive Date: 20040928
  Receipt Date: 20040824
  Transmission Date: 20050211
  Serious: No
  Sender: FDA-Public Use
  Company Number: US-GLAXOSMITHKLINE-A0523328A

PATIENT
  Sex: Female

DRUGS (5)
  1. ADVAIR DISKUS 100/50 [Suspect]
     Indication: ASTHMA
     Dosage: 1BLS TWICE PER DAY
     Route: 055
     Dates: start: 20040401
  2. NADOLOL [Concomitant]
  3. SYNTHROID [Concomitant]
  4. DIOVAN HCT [Concomitant]
  5. FOSAMAX [Concomitant]

REACTIONS (1)
  - ORAL CANDIDIASIS [None]
